FAERS Safety Report 4572425-5 (Version None)
Quarter: 2005Q1

REPORT INFORMATION
  Report Type: 
  Country: None (occurrence: None)
  Receive Date: 20050207
  Receipt Date: 20050124
  Transmission Date: 20050727
  Serious: Yes (Other)
  Sender: FDA-Public Use
  Company Number: TR-GLAXOSMITHKLINE-B0369195A

PATIENT
  Age: 44 Year
  Sex: Female

DRUGS (2)
  1. ZEFFIX [Suspect]
     Dosage: 100MG PER DAY
     Route: 065
  2. HEPATITIS B IMMUNE GLOBULIN (HUMAN) [Suspect]
     Route: 065

REACTIONS (13)
  - ALANINE AMINOTRANSFERASE INCREASED [None]
  - ANTI-HBS ANTIBODY POSITIVE [None]
  - BLOOD ALKALINE PHOSPHATASE INCREASED [None]
  - DRUG INEFFECTIVE [None]
  - DRUG RESISTANCE [None]
  - GAMMA-GLUTAMYLTRANSFERASE INCREASED [None]
  - HEPATIC FIBROSIS [None]
  - HEPATITIS B [None]
  - HEPATITIS CHOLESTATIC [None]
  - JAUNDICE [None]
  - LIVER TRANSPLANT [None]
  - PRURITUS [None]
  - TRANSAMINASES INCREASED [None]
